FAERS Safety Report 16059621 (Version 1)
Quarter: 2019Q1

REPORT INFORMATION
  Report Type: Spontaneous
  Country: US (occurrence: US)
  Receive Date: 20190311
  Receipt Date: 20190311
  Transmission Date: 20190418
  Serious: Yes (Other)
  Sender: FDA-Public Use
  Company Number: US-GUERBET-US-20190040

PATIENT
  Sex: Female

DRUGS (3)
  1. MULTIHANCE [Concomitant]
     Active Substance: GADOBENATE DIMEGLUMINE
     Indication: NUCLEAR MAGNETIC RESONANCE IMAGING
     Route: 065
     Dates: start: 20150811
  2. OPTIMARK [Suspect]
     Active Substance: GADOVERSETAMIDE
     Indication: NUCLEAR MAGNETIC RESONANCE IMAGING
     Route: 065
     Dates: start: 20130119
  3. MULTIHANCE [Concomitant]
     Active Substance: GADOBENATE DIMEGLUMINE
     Indication: NUCLEAR MAGNETIC RESONANCE IMAGING
     Route: 065
     Dates: start: 20161108

REACTIONS (5)
  - Anxiety [Not Recovered/Not Resolved]
  - Product residue present [Not Recovered/Not Resolved]
  - Fibrosis [Not Recovered/Not Resolved]
  - Pain [Not Recovered/Not Resolved]
  - Emotional distress [Not Recovered/Not Resolved]
